FAERS Safety Report 12570704 (Version 2)
Quarter: 2016Q3

REPORT INFORMATION
  Report Type: Spontaneous
  Country: JP (occurrence: JP)
  Receive Date: 20160719
  Receipt Date: 20160831
  Transmission Date: 20161109
  Serious: Yes (Life-Threatening)
  Sender: FDA-Public Use
  Company Number: JP-BAYER-2016-140459

PATIENT
  Age: 55 Year
  Sex: Female

DRUGS (2)
  1. GADOVIST [Suspect]
     Active Substance: GADOBUTROL
     Indication: THYMOMA
  2. GADOVIST [Suspect]
     Active Substance: GADOBUTROL
     Indication: NUCLEAR MAGNETIC RESONANCE IMAGING
     Dosage: 8 ML, ONCE
     Route: 042
     Dates: start: 20160714, end: 20160714

REACTIONS (4)
  - Cough [Recovered/Resolved]
  - Blood pressure decreased [Recovered/Resolved]
  - Rhinorrhoea [Recovered/Resolved]
  - Bradycardia [Recovered/Resolved]

NARRATIVE: CASE EVENT DATE: 20160714
